FAERS Safety Report 8986420 (Version 1)
Quarter: 2012Q4

REPORT INFORMATION
  Report Type: Report from Study
  Country: BR (occurrence: BR)
  Receive Date: 20121226
  Receipt Date: 20121226
  Transmission Date: 20130627
  Serious: Yes (Death, Other)
  Sender: FDA-Public Use
  Company Number: BR-ROCHE-1171022

PATIENT
  Age: 32 Year
  Sex: Female

DRUGS (2)
  1. BEVACIZUMAB [Suspect]
     Indication: BREAST CANCER METASTATIC
     Route: 042
  2. PACLITAXEL [Suspect]
     Indication: BREAST CANCER METASTATIC
     Route: 065

REACTIONS (3)
  - Bicytopenia [Fatal]
  - Hepatic failure [Fatal]
  - Therapeutic response decreased [Unknown]
